FAERS Safety Report 18227126 (Version 1)
Quarter: 2020Q3

REPORT INFORMATION
  Report Type: Spontaneous
  Country: US (occurrence: US)
  Receive Date: 20200902
  Receipt Date: 20200902
  Transmission Date: 20201103
  Serious: Yes (Death)
  Sender: FDA-Public Use
  Company Number: None

PATIENT
  Age: 58 Year
  Sex: Male
  Weight: 82 kg

DRUGS (1)
  1. IODIXANOL (IODIXANOL 270MGI/ML INJ) [Suspect]
     Active Substance: IODIXANOL
     Indication: ANGIOGRAM
     Dosage: ?          OTHER ROUTE:IV?
     Route: 042
     Dates: start: 20200619, end: 20200619

REACTIONS (4)
  - Peripheral circulatory failure [None]
  - Hypotension [None]
  - Anaphylactic reaction [None]
  - Dyspnoea [None]

NARRATIVE: CASE EVENT DATE: 20200619
